FAERS Safety Report 8840202 (Version 3)
Quarter: 2012Q4

REPORT INFORMATION
  Report Type: 
  Country: US (occurrence: US)
  Receive Date: 20121015
  Receipt Date: 20121025
  Transmission Date: 20130627
  Serious: Yes (Hospitalization, Other)
  Sender: FDA-Public Use
  Company Number: US-ROCHE-1140214

PATIENT
  Age: 51 Year
  Sex: Male

DRUGS (3)
  1. PEG-INTERFERON ALFA 2A [Suspect]
     Indication: HEPATITIS C
     Route: 058
     Dates: start: 20120916
  2. RIBAVIRIN [Suspect]
     Indication: HEPATITIS C
     Dosage: in divided doses 400/600
     Route: 048
     Dates: start: 20120916
  3. TELAPREVIR [Suspect]
     Indication: HEPATITIS C
     Dosage: 2 tab tid
     Route: 065
     Dates: start: 20120916

REACTIONS (4)
  - Constipation [Unknown]
  - Chest pain [Unknown]
  - Headache [Unknown]
  - Chest discomfort [Unknown]
